FAERS Safety Report 21255473 (Version 2)
Quarter: 2023Q1

REPORT INFORMATION
  Report Type: Spontaneous
  Country: US (occurrence: US)
  Receive Date: 20220825
  Receipt Date: 20230130
  Transmission Date: 20230417
  Serious: No
  Sender: FDA-Public Use
  Company Number: US-ALNYLAM PHARMACEUTICALS, INC.-ALN-2022-002948

PATIENT

DRUGS (3)
  1. ONPATTRO [Suspect]
     Active Substance: PATISIRAN SODIUM
     Indication: Hereditary neuropathic amyloidosis
     Dosage: UNK
     Route: 065
     Dates: start: 20221227
  2. ONPATTRO [Suspect]
     Active Substance: PATISIRAN SODIUM
     Dosage: UNK
     Route: 065
     Dates: start: 20190208, end: 20190208
  3. ONPATTRO [Suspect]
     Active Substance: PATISIRAN SODIUM
     Dosage: UNK
     Route: 042
     Dates: start: 20180301, end: 20180301

REACTIONS (2)
  - Balance disorder [Unknown]
  - Polyneuropathy [Unknown]
